FAERS Safety Report 13458300 (Version 1)
Quarter: 2017Q2

REPORT INFORMATION
  Report Type: Spontaneous
  Country: MX (occurrence: MX)
  Receive Date: 20170419
  Receipt Date: 20170419
  Transmission Date: 20170830
  Serious: Yes (Other)
  Sender: FDA-Public Use
  Company Number: MX-PFIZER INC-2017170714

PATIENT
  Sex: Male

DRUGS (7)
  1. EPAMIN [Suspect]
     Active Substance: PHENYTOIN SODIUM
     Dosage: UNK
  2. SERTRALINE HCL [Suspect]
     Active Substance: SERTRALINE HYDROCHLORIDE
     Dosage: UNK
  3. TAFIL [Suspect]
     Active Substance: ALPRAZOLAM
     Dosage: UNK
  4. CLOPIDOGREL [Concomitant]
     Active Substance: CLOPIDOGREL BISULFATE
     Dosage: UNK
  5. COMBODART [Concomitant]
     Active Substance: DUTASTERIDE\TAMSULOSIN
     Dosage: UNK
  6. CRESTOR [Concomitant]
     Active Substance: ROSUVASTATIN CALCIUM
     Dosage: UNK
  7. FELODIPINO [Concomitant]
     Dosage: UNK

REACTIONS (2)
  - Speech disorder [Not Recovered/Not Resolved]
  - Cerebral infarction [Not Recovered/Not Resolved]
